FAERS Safety Report 20065671 (Version 2)
Quarter: 2021Q4

REPORT INFORMATION
  Report Type: Report from Study
  Country: CO (occurrence: CO)
  Receive Date: 20211113
  Receipt Date: 20211125
  Transmission Date: 20220303
  Serious: Yes (Hospitalization)
  Sender: FDA-Public Use
  Company Number: CO-NOVARTISPH-NVSC2021CO257945

PATIENT
  Age: 55 Year
  Sex: Female

DRUGS (2)
  1. COSENTYX [Suspect]
     Active Substance: SECUKINUMAB
     Indication: Ankylosing spondylitis
     Dosage: 300 MG, QMO
     Route: 058
     Dates: start: 202004
  2. COSENTYX [Suspect]
     Active Substance: SECUKINUMAB
     Dosage: 300 MG, QMO
     Route: 058
     Dates: start: 20211109

REACTIONS (4)
  - Localised infection [Recovered/Resolved]
  - Oral candidiasis [Recovered/Resolved]
  - Feeling abnormal [Unknown]
  - Localised infection [Recovered/Resolved]

NARRATIVE: CASE EVENT DATE: 20210825
